FAERS Safety Report 9205416 (Version 1)
Quarter: 2013Q2

REPORT INFORMATION
  Report Type: Spontaneous
  Country: US (occurrence: US)
  Receive Date: 20130403
  Receipt Date: 20130403
  Transmission Date: 20140414
  Serious: Yes (Other)
  Sender: FDA-Public Use
  Company Number: US-AMGEN-USASP2013021443

PATIENT
  Sex: Female

DRUGS (9)
  1. ENBREL [Suspect]
     Indication: RHEUMATOID ARTHRITIS
     Dosage: UNK
  2. ARAVA [Concomitant]
     Dosage: 20 MG, QD
  3. NAPROXEN [Concomitant]
     Dosage: 500 MG, BID
  4. CYTOTEC [Concomitant]
     Dosage: 100 MG, BID
  5. OXYCONTIN [Concomitant]
     Dosage: 100 MG, BID
  6. ATENOLOL [Concomitant]
     Dosage: 50 MG, QD
  7. HYDROCHLOROTHIAZIDE [Concomitant]
     Dosage: 25 MG, QD
  8. LEVOTHYROXINE [Concomitant]
     Dosage: 0.88 MG, QD
  9. OMEPRAZOLE [Concomitant]
     Dosage: 20 MG, QD

REACTIONS (6)
  - Hypoaesthesia [Unknown]
  - Osteomyelitis chronic [Unknown]
  - Oral infection [Unknown]
  - Postoperative wound infection [Not Recovered/Not Resolved]
  - Tooth extraction [Unknown]
  - Impaired healing [Unknown]
